FAERS Safety Report 9525377 (Version 1)
Quarter: 2013Q1

REPORT INFORMATION
  Report Type: Spontaneous
  Country: US (occurrence: None)
  Receive Date: 20130314
  Receipt Date: 20130314
  Transmission Date: 20140127
  Serious: Yes (Other)
  Sender: FDA-Public Use
  Company Number: E7389-03319-SPO-US

PATIENT
  Age: 38 Year
  Sex: Female

DRUGS (2)
  1. HALAVEN [Suspect]
     Indication: BREAST CANCER METASTATIC
     Dosage: 2 IN 21 D
  2. HALAVEN [Suspect]
     Indication: BONE MARROW DISORDER
     Dosage: 2 IN 21 D

REACTIONS (1)
  - Platelet count decreased [None]
